FAERS Safety Report 4758065-3 (Version None)
Quarter: 2005Q3

REPORT INFORMATION
  Report Type: 
  Country: None (occurrence: None)
  Receive Date: 20050829
  Receipt Date: 20050818
  Transmission Date: 20060218
  Serious: Yes (Hospitalization)
  Sender: FDA-Public Use
  Company Number: HQWYE028719AUG05

PATIENT
  Age: 32 Year
  Sex: Male

DRUGS (1)
  1. RAPAMUNE [Suspect]
     Indication: PROPHYLAXIS AGAINST TRANSPLANT REJECTION
     Dosage: 3 MG 1X PER 1 DAY ORAL
     Route: 048
     Dates: start: 20030129

REACTIONS (3)
  - CLOSTRIDIUM COLITIS [None]
  - DIARRHOEA HAEMORRHAGIC [None]
  - IMMUNOSUPPRESSION [None]
